FAERS Safety Report 7323823-8 (Version None)
Quarter: 2011Q1

REPORT INFORMATION
  Report Type: 
  Country: None (occurrence: None)
  Receive Date: 20110301
  Receipt Date: 20110221
  Transmission Date: 20110831
  Serious: Yes (Hospitalization)
  Sender: FDA-Public Use
  Company Number: A0894305A

PATIENT
  Age: 67 Year
  Sex: Male
  Weight: 127.3 kg

DRUGS (8)
  1. GLUCOVANCE [Concomitant]
  2. NORVASC [Concomitant]
  3. FLOVENT [Concomitant]
  4. FORADIL [Concomitant]
  5. PRILOSEC [Concomitant]
  6. ALBUTEROL [Concomitant]
  7. COZAAR [Concomitant]
  8. AVANDIA [Suspect]
     Dosage: 8MG PER DAY
     Route: 048
     Dates: start: 20020101, end: 20070727

REACTIONS (4)
  - MYOCARDIAL INFARCTION [None]
  - ATRIAL FIBRILLATION [None]
  - CARDIAC FAILURE CONGESTIVE [None]
  - TOOTH LOSS [None]
